FAERS Safety Report 9107135 (Version 1)
Quarter: 2013Q1

REPORT INFORMATION
  Report Type: Spontaneous
  Country: US (occurrence: US)
  Receive Date: 20130221
  Receipt Date: 20130221
  Transmission Date: 20140127
  Serious: Yes (Other)
  Sender: FDA-Public Use
  Company Number: US-ROXANE LABORATORIES, INC.-2013-RO-00273RO

PATIENT
  Age: 78 Year
  Sex: Female

DRUGS (5)
  1. QUETIAPINE FUMARATE [Suspect]
     Indication: DEMENTIA
     Dosage: 12.5 MG
  2. QUETIAPINE FUMARATE [Suspect]
     Dosage: 50 MG
  3. QUETIAPINE FUMARATE [Suspect]
     Dosage: 100 MG
  4. RISPERIDONE [Suspect]
     Indication: DEMENTIA
     Dosage: 0.25 MG
  5. ARIPIPRAZOLE [Suspect]
     Indication: DEMENTIA
     Dosage: 7.5 MG

REACTIONS (4)
  - Gait disturbance [Unknown]
  - Akathisia [Unknown]
  - Muscle rigidity [Unknown]
  - Fall [Unknown]
